FAERS Safety Report 13864127 (Version 2)
Quarter: 2017Q3

REPORT INFORMATION
  Report Type: Report from Study
  Country: US (occurrence: US)
  Receive Date: 20170814
  Receipt Date: 20170913
  Transmission Date: 20171127
  Serious: Yes (Hospitalization)
  Sender: FDA-Public Use
  Company Number: US-JNJFOC-20170811285

PATIENT
  Age: 66 Year
  Sex: Female

DRUGS (12)
  1. OFLOXACIN. [Concomitant]
     Active Substance: OFLOXACIN
  2. FISH OIL [Concomitant]
     Active Substance: FISH OIL
  3. IMBRUVICA [Suspect]
     Active Substance: IBRUTINIB
     Indication: CHRONIC LYMPHOCYTIC LEUKAEMIA
     Route: 048
     Dates: start: 20160801
  4. LISINOPRIL. [Concomitant]
     Active Substance: LISINOPRIL
  5. ALLOPURINOL. [Concomitant]
     Active Substance: ALLOPURINOL
  6. CALCIUM [Concomitant]
     Active Substance: CALCIUM
  7. BIOTIN [Concomitant]
     Active Substance: BIOTIN
  8. PREVNAR [Concomitant]
     Active Substance: PNEUMOCOCCAL 7-VALENT CONJUGATE VACCINE (DIPHTHERIA CRM197 PROTEIN)
  9. IMBRUVICA [Suspect]
     Active Substance: IBRUTINIB
     Indication: CHRONIC LYMPHOCYTIC LEUKAEMIA
     Route: 048
     Dates: start: 20170412
  10. VITAMIN B12 [Concomitant]
     Active Substance: CYANOCOBALAMIN
  11. PLAVIX [Suspect]
     Active Substance: CLOPIDOGREL BISULFATE
     Indication: PRODUCT USED FOR UNKNOWN INDICATION
     Route: 065
  12. KETOROLAC [Concomitant]
     Active Substance: KETOROLAC\KETOROLAC TROMETHAMINE

REACTIONS (2)
  - Oesophageal irritation [Unknown]
  - Cerebrovascular accident [Unknown]

NARRATIVE: CASE EVENT DATE: 201706
